FAERS Safety Report 6735315-5 (Version None)
Quarter: 2010Q2

REPORT INFORMATION
  Report Type: 
  Country: None (occurrence: None)
  Receive Date: 20100521
  Receipt Date: 20100517
  Transmission Date: 20101027
  Serious: Yes (Hospitalization, Other)
  Sender: FDA-Public Use
  Company Number: US-CEPHALON-2009029282

PATIENT
  Sex: Female
  Weight: 101 kg

DRUGS (16)
  1. PROVIGIL [Suspect]
     Indication: PARKINSON'S DISEASE
     Route: 048
     Dates: start: 20040101, end: 20090101
  2. PROVIGIL [Suspect]
     Route: 048
     Dates: start: 20090101
  3. REQUIP XL [Suspect]
     Dates: start: 20090101, end: 20091001
  4. REQUIP XL [Suspect]
     Dates: start: 20091001, end: 20090101
  5. NAPROXEN [Concomitant]
     Dates: end: 20091101
  6. MIRAPEX [Concomitant]
     Dates: start: 20040101, end: 20081101
  7. SINEMET [Concomitant]
     Dates: start: 20040101
  8. LYRICA [Concomitant]
     Dates: start: 20090401
  9. OPANA ER [Concomitant]
     Dates: start: 20090401
  10. NEXIUM [Concomitant]
     Dates: start: 20080101
  11. LACTULOSE [Concomitant]
     Dates: start: 20091001
  12. COLCHICINE [Concomitant]
     Dates: start: 20090701
  13. I-PHENYLALANINE [Concomitant]
  14. VITAMINS [Concomitant]
  15. TUNA OIL [Concomitant]
  16. HERBOLOGICAL PROBIOTIC BLEND [Concomitant]

REACTIONS (11)
  - ARTHROPATHY [None]
  - CHONDROCALCINOSIS PYROPHOSPHATE [None]
  - DRUG INEFFECTIVE FOR UNAPPROVED INDICATION [None]
  - FALL [None]
  - GASTROOESOPHAGEAL REFLUX DISEASE [None]
  - LIGAMENT RUPTURE [None]
  - MUSCLE STRAIN [None]
  - OEDEMA PERIPHERAL [None]
  - PULMONARY EMBOLISM [None]
  - SPINAL COLUMN STENOSIS [None]
  - TRANSIENT ISCHAEMIC ATTACK [None]
